FAERS Safety Report 9819274 (Version 1)
Quarter: 2014Q1

REPORT INFORMATION
  Report Type: Spontaneous
  Country: US (occurrence: US)
  Receive Date: 20140115
  Receipt Date: 20140115
  Transmission Date: 20141002
  Serious: Yes (Hospitalization)
  Sender: FDA-Public Use
  Company Number: US-ENDO PHARMACEUTICALS INC.-OXYC20140003

PATIENT
  Sex: Male

DRUGS (1)
  1. OXYCODONE HCL 15MG [Suspect]
     Indication: PAIN
     Dosage: 15 MG
     Route: 048

REACTIONS (1)
  - Blood disorder [Unknown]
